FAERS Safety Report 9578667 (Version 1)
Quarter: 2013Q4

REPORT INFORMATION
  Report Type: Spontaneous
  Country: US (occurrence: US)
  Receive Date: 20131001
  Receipt Date: 20131001
  Transmission Date: 20140711
  Serious: No
  Sender: FDA-Public Use
  Company Number: US-AMGEN-USASP2013014292

PATIENT
  Sex: Female

DRUGS (5)
  1. ENBREL [Suspect]
     Indication: RHEUMATOID ARTHRITIS
     Dosage: 50 MG, ONCE A WEEK
     Route: 058
  2. ORENCIA [Concomitant]
     Dosage: 125 MG/ML, UNK
  3. VICODIN ES [Concomitant]
     Dosage: 7.5 - 750 UNK, UNK
  4. SYNTHROID [Concomitant]
     Dosage: 175 MUG, UNK
  5. METHOTREXATE [Concomitant]
     Dosage: 2.5 MG, UNK

REACTIONS (1)
  - Drug effect decreased [Unknown]
